FAERS Safety Report 14178727 (Version 2)
Quarter: 2018Q1

REPORT INFORMATION
  Report Type: Spontaneous
  Country: US (occurrence: US)
  Receive Date: 20171110
  Receipt Date: 20180323
  Transmission Date: 20180508
  Serious: Yes (Hospitalization)
  Sender: FDA-Public Use
  Company Number: US-JNJFOC-20171109382

PATIENT
  Age: 68 Year
  Sex: Male

DRUGS (5)
  1. ZYTIGA [Suspect]
     Active Substance: ABIRATERONE ACETATE
     Indication: PROSTATE CANCER METASTATIC
     Route: 048
     Dates: start: 201706
  2. PREDNISONE. [Suspect]
     Active Substance: PREDNISONE
     Indication: PROSTATE CANCER METASTATIC
     Route: 065
     Dates: start: 201706
  3. NEXIUM [Concomitant]
     Active Substance: ESOMEPRAZOLE MAGNESIUM
     Route: 065
  4. FENTANYL. [Suspect]
     Active Substance: FENTANYL
     Indication: PROSTATE CANCER METASTATIC
     Route: 065
     Dates: end: 201710
  5. PERCOCET [Suspect]
     Active Substance: ACETAMINOPHEN\OXYCODONE HYDROCHLORIDE
     Indication: PROSTATE CANCER METASTATIC
     Route: 065
     Dates: end: 201710

REACTIONS (3)
  - Vomiting [Recovered/Resolved]
  - Nausea [Recovered/Resolved]
  - Radiotherapy [Unknown]

NARRATIVE: CASE EVENT DATE: 20170601
